FAERS Safety Report 5158871-X (Version None)
Quarter: 2006Q4

REPORT INFORMATION
  Report Type: 
  Country: None (occurrence: None)
  Receive Date: 20061117
  Receipt Date: 20060725
  Transmission Date: 20070319
  Serious: Yes (Other)
  Sender: FDA-Public Use
  Company Number: 2006138227

PATIENT
  Age: 61 Year
  Sex: Female
  Weight: 92.9874 kg

DRUGS (1)
  1. SUTENT [Suspect]
     Dosage: 50 MG (50 MG, QD - EVERYDAY) 5 WEEKS AGO- 8 DAYS AGO

REACTIONS (4)
  - ABDOMINAL DISTENSION [None]
  - BLOOD PRESSURE INCREASED [None]
  - CONSTIPATION [None]
  - FLATULENCE [None]
